FAERS Safety Report 7211988-8 (Version None)
Quarter: 2011Q1

REPORT INFORMATION
  Report Type: 
  Country: None (occurrence: None)
  Receive Date: 20110106
  Receipt Date: 20101222
  Transmission Date: 20110831
  Serious: No
  Sender: FDA-Public Use
  Company Number: US-BIOGENIDEC-2010BI044649

PATIENT
  Age: 30 Year
  Sex: Female

DRUGS (1)
  1. AVONEX [Suspect]
     Indication: MULTIPLE SCLEROSIS
     Route: 030
     Dates: start: 20100716

REACTIONS (5)
  - WEIGHT INCREASED [None]
  - SINUS HEADACHE [None]
  - COUGH [None]
  - INFLUENZA LIKE ILLNESS [None]
  - OROPHARYNGEAL DISCOMFORT [None]
